FAERS Safety Report 7544651-4 (Version None)
Quarter: 2011Q2

REPORT INFORMATION
  Report Type: 
  Country: None (occurrence: None)
  Receive Date: 20110614
  Receipt Date: 20110609
  Transmission Date: 20111010
  Serious: No
  Sender: FDA-Public Use
  Company Number: US-BIOGENIDEC-2011BI015011

PATIENT
  Age: 52 Year
  Sex: Female

DRUGS (1)
  1. TYSABRI [Suspect]
     Indication: MULTIPLE SCLEROSIS
     Route: 042
     Dates: start: 20090518

REACTIONS (8)
  - PAIN IN EXTREMITY [None]
  - NAUSEA [None]
  - EYE PAIN [None]
  - BACK PAIN [None]
  - DIZZINESS [None]
  - ARTHRALGIA [None]
  - MULTIPLE SCLEROSIS [None]
  - LACRIMATION INCREASED [None]
